FAERS Safety Report 15150500 (Version 1)
Quarter: 2018Q3

REPORT INFORMATION
  Report Type: Spontaneous
  Country: IN (occurrence: IN)
  Receive Date: 20180716
  Receipt Date: 20180716
  Transmission Date: 20181010
  Serious: Yes (Hospitalization)
  Sender: FDA-Public Use
  Company Number: IN-MYLANLABS-2018M1051533

PATIENT
  Age: 8 Year
  Sex: Male

DRUGS (1)
  1. OLANZAPINE. [Suspect]
     Active Substance: OLANZAPINE
     Indication: PRODUCT USED FOR UNKNOWN INDICATION
     Dosage: TWO TABLETS OF 15MG EACH (TOTAL 1.2MG/KG)
     Route: 048

REACTIONS (4)
  - Toxicity to various agents [Recovered/Resolved]
  - Miosis [Recovered/Resolved]
  - Accidental overdose [Recovered/Resolved]
  - Somnolence [Recovered/Resolved]
